FAERS Safety Report 22308944 (Version 3)
Quarter: 2024Q1

REPORT INFORMATION
  Report Type: Report from Study
  Country: US (occurrence: US)
  Receive Date: 20230511
  Receipt Date: 20240321
  Transmission Date: 20240409
  Serious: Yes (Hospitalization)
  Sender: FDA-Public Use
  Company Number: US-VERTEX PHARMACEUTICALS-2023-006659

PATIENT
  Age: 11 Year
  Sex: Female

DRUGS (6)
  1. ORKAMBI [Suspect]
     Active Substance: IVACAFTOR\LUMACAFTOR
     Indication: Cystic fibrosis
     Dosage: 2 TABLETS (100 MG LUMACAFTOR/125 MG IVACAFTOR), BID
     Route: 048
     Dates: start: 20170913
  2. ALBUTEROL [Concomitant]
     Active Substance: ALBUTEROL
     Dosage: NEBULIZATION SOLUTION 0.083%
  3. ALBUTEROL SULFATE [Concomitant]
     Active Substance: ALBUTEROL SULFATE
  4. CREON [Concomitant]
     Active Substance: PANCRELIPASE AMYLASE\PANCRELIPASE LIPASE\PANCRELIPASE PROTEASE
     Dosage: 12000 IU
  5. SODIUM CHLORIDE [Concomitant]
     Active Substance: SODIUM CHLORIDE
     Dosage: 7%
  6. MIRALAX [Concomitant]
     Active Substance: POLYETHYLENE GLYCOL 3350

REACTIONS (1)
  - Pulmonary function test decreased [Recovered/Resolved]

NARRATIVE: CASE EVENT DATE: 20230425
